FAERS Safety Report 25274313 (Version 1)
Quarter: 2025Q2

REPORT INFORMATION
  Report Type: Spontaneous
  Country: None (occurrence: CA)
  Receive Date: 20250506
  Receipt Date: 20250506
  Transmission Date: 20250716
  Serious: Yes (Hospitalization)
  Sender: MYLAN
  Company Number: CA-MYLANLABS-2025M1037640

PATIENT
  Sex: Male

DRUGS (4)
  1. EPIPEN [Suspect]
     Active Substance: EPINEPHRINE
     Indication: Hypersensitivity
  2. EPIPEN [Suspect]
     Active Substance: EPINEPHRINE
     Route: 065
  3. EPIPEN [Suspect]
     Active Substance: EPINEPHRINE
     Route: 065
  4. EPIPEN [Suspect]
     Active Substance: EPINEPHRINE

REACTIONS (3)
  - Injection site pain [Recovering/Resolving]
  - Injection site thrombosis [Recovering/Resolving]
  - Incorrect dose administered [Unknown]
